FAERS Safety Report 5457322-5 (Version None)
Quarter: 2007Q3

REPORT INFORMATION
  Report Type: 
  Country: None (occurrence: None)
  Receive Date: 20070918
  Receipt Date: 20070314
  Transmission Date: 20080115
  Serious: No
  Sender: FDA-Public Use
  Company Number: US-ASTRAZENECA-2007UW02875

PATIENT
  Age: 34 Year
  Sex: Female
  Weight: 90.7 kg

DRUGS (7)
  1. SEROQUEL [Suspect]
     Indication: DEPRESSION
     Route: 048
  2. SEROQUEL [Suspect]
     Route: 048
  3. NEXIUM [Concomitant]
     Route: 048
  4. TOPROL-XL [Concomitant]
     Route: 048
  5. POTASSIUM CHLORIDE [Concomitant]
  6. MAGNESIUM SULFATE [Concomitant]
  7. ESTRADIOL [Concomitant]

REACTIONS (3)
  - FEELING ABNORMAL [None]
  - INSOMNIA [None]
  - RESTLESS LEGS SYNDROME [None]
